FAERS Safety Report 4985675-0 (Version None)
Quarter: 2006Q2

REPORT INFORMATION
  Report Type: 
  Country: None (occurrence: None)
  Receive Date: 20060428
  Receipt Date: 20051104
  Transmission Date: 20061013
  Serious: No
  Sender: FDA-Public Use
  Company Number: US-GLAXOSMITHKLINE-A0580896A

PATIENT
  Age: 50 Year
  Sex: Female

DRUGS (3)
  1. ZOFRAN [Suspect]
     Dosage: 4MG PER DAY
     Route: 042
     Dates: start: 20051101, end: 20051101
  2. OPIOIDS [Concomitant]
  3. ZANAFLEX [Concomitant]

REACTIONS (1)
  - INJECTION SITE EXTRAVASATION [None]
